FAERS Safety Report 24528593 (Version 2)
Quarter: 2024Q4

REPORT INFORMATION
  Report Type: Spontaneous
  Country: US (occurrence: US)
  Receive Date: 20241021
  Receipt Date: 20241023
  Transmission Date: 20250114
  Serious: No
  Sender: ROCHE
  Company Number: US-ROCHE-10000106964

PATIENT
  Age: 16 Year
  Sex: Male
  Weight: 81.19 kg

DRUGS (1)
  1. NUTROPIN [Suspect]
     Active Substance: SOMATROPIN
     Indication: Short stature
     Route: 065
     Dates: start: 2024

REACTIONS (2)
  - Product storage error [Unknown]
  - No adverse event [Unknown]
